FAERS Safety Report 20472398 (Version 2)
Quarter: 2022Q2

REPORT INFORMATION
  Report Type: Report from Study
  Country: US (occurrence: US)
  Receive Date: 20220215
  Receipt Date: 20220403
  Transmission Date: 20220720
  Serious: Yes (Hospitalization)
  Sender: FDA-Public Use
  Company Number: US-SA-SAC20220210001426

PATIENT
  Age: 51 Year
  Sex: Female

DRUGS (2)
  1. DUPIXENT [Suspect]
     Active Substance: DUPILUMAB
     Indication: Asthma
     Dosage: 600 MG, 1X
     Route: 058
     Dates: start: 20210810, end: 20210810
  2. DUPIXENT [Suspect]
     Active Substance: DUPILUMAB
     Dosage: 300 MG, QOW
     Route: 058
     Dates: start: 20210824, end: 20211115

REACTIONS (3)
  - COVID-19 [Unknown]
  - Post-acute COVID-19 syndrome [Unknown]
  - Product use issue [Unknown]

NARRATIVE: CASE EVENT DATE: 20211119
